FAERS Safety Report 20718424 (Version 1)
Quarter: 2022Q2

REPORT INFORMATION
  Report Type: Spontaneous
  Country: US (occurrence: US)
  Receive Date: 20220418
  Receipt Date: 20220418
  Transmission Date: 20220721
  Serious: Yes (Other)
  Sender: FDA-Public Use
  Company Number: US-APOTEX-2022AP005974

PATIENT
  Sex: Female

DRUGS (5)
  1. ALENDRONATE SODIUM [Suspect]
     Active Substance: ALENDRONATE SODIUM
     Indication: Osteoporosis
     Dosage: 70 MILLIGRAM, Q.WK., EVERY SUNDAY
     Route: 048
  2. CALCIUM [Concomitant]
     Active Substance: CALCIUM
     Indication: Mineral supplementation
     Dosage: UNK, ONCE A DAY EXCEPT DURING SUNDAYS
     Route: 048
  3. VITAMIN D NOS [Concomitant]
     Active Substance: VITAMIN D NOS
     Indication: Vitamin supplementation
     Dosage: UNK, ONCE A DAY EXCEPT DURING SUNDAYS
     Route: 048
  4. VITAMIN B3 [Concomitant]
     Active Substance: NIACIN
     Indication: Vitamin supplementation
     Dosage: UNK, ONCE A DAY EXCEPT DURING SUNDAYS
     Route: 048
  5. VITAMIN C [Concomitant]
     Active Substance: ASCORBIC ACID
     Indication: Vitamin supplementation
     Dosage: UNK, ONCE A DAY EXCEPT DURING SUNDAYS
     Route: 048

REACTIONS (5)
  - Foreign body in throat [Unknown]
  - Dry mouth [Not Recovered/Not Resolved]
  - Fatigue [Not Recovered/Not Resolved]
  - Muscle spasms [Recovered/Resolved]
  - Gastrooesophageal reflux disease [Unknown]
